FAERS Safety Report 7891786 (Version 12)
Quarter: 2017Q3

REPORT INFORMATION
  Report Type: Report from Study
  Country: CA (occurrence: CA)
  Receive Date: 20110408
  Receipt Date: 20170710
  Transmission Date: 20171128
  Serious: Yes (Life-Threatening, Hospitalization, Other)
  Sender: FDA-Public Use
  Company Number: PHHY2011CA25382

PATIENT
  Age: 77 Year
  Sex: Male

DRUGS (8)
  1. ATIVAN [Concomitant]
     Active Substance: LORAZEPAM
     Indication: PRODUCT USED FOR UNKNOWN INDICATION
     Dosage: 1 MG, PRN
     Route: 048
  2. SANDOSTATIN LAR DEPOT [Suspect]
     Active Substance: OCTREOTIDE ACETATE
     Indication: ACROMEGALY
     Dosage: 40 MG, QMO (EVERY 4 WEEK)
     Route: 030
     Dates: start: 20071212
  3. SANDOSTATIN LAR DEPOT [Suspect]
     Active Substance: OCTREOTIDE ACETATE
     Dosage: 30 MG, QMO (ONCE A MONTH)
     Route: 030
  4. SANDOSTATIN LAR DEPOT [Suspect]
     Active Substance: OCTREOTIDE ACETATE
     Dosage: 40 MG, QMO (EVERY 4 WEEK)
     Route: 030
     Dates: start: 20120423
  5. D TABS [Concomitant]
     Indication: PRODUCT USED FOR UNKNOWN INDICATION
     Dosage: 10000 IU, QW
     Route: 048
  6. GLUCOPHAGE [Concomitant]
     Active Substance: METFORMIN HYDROCHLORIDE
     Indication: PRODUCT USED FOR UNKNOWN INDICATION
     Dosage: 500 MG, BID
     Route: 065
  7. CRESTOR [Concomitant]
     Active Substance: ROSUVASTATIN CALCIUM
     Indication: PRODUCT USED FOR UNKNOWN INDICATION
     Dosage: 10 MG, QD
     Route: 065
  8. SANDOSTATIN LAR DEPOT [Suspect]
     Active Substance: OCTREOTIDE ACETATE
     Dosage: 40 MG, QMO (ONCE A MONTH)
     Route: 030

REACTIONS (19)
  - Feeling abnormal [Unknown]
  - Cholelithiasis [Unknown]
  - Gastrointestinal infection [Unknown]
  - Sleep disorder [Unknown]
  - Abdominal pain [Unknown]
  - Viral infection [Unknown]
  - Muscle spasms [Unknown]
  - Cystitis [Unknown]
  - Bile duct stone [Unknown]
  - Back pain [Unknown]
  - Loss of consciousness [Unknown]
  - Pancreatitis [Unknown]
  - Syncope [Unknown]
  - Confusional state [Unknown]
  - Blood pressure systolic increased [Unknown]
  - Urinary tract infection [Unknown]
  - Pain [Unknown]
  - Biliary colic [Unknown]
  - Fatigue [Unknown]

NARRATIVE: CASE EVENT DATE: 20130903
